FAERS Safety Report 17971034 (Version 3)
Quarter: 2020Q3

REPORT INFORMATION
  Report Type: Spontaneous
  Country: US (occurrence: US)
  Receive Date: 20200701
  Receipt Date: 20200917
  Transmission Date: 20201103
  Serious: Yes (Death, Life-Threatening, Hospitalization, Other)
  Sender: FDA-Public Use
  Company Number: US-GILEAD-2020-0477731

PATIENT
  Age: 54 Year
  Sex: Male
  Weight: 86 kg

DRUGS (31)
  1. AMIODARONE [Suspect]
     Active Substance: AMIODARONE
     Indication: PRODUCT USED FOR UNKNOWN INDICATION
     Dosage: 0.5 MG, Q1MINUTE
     Route: 042
  2. TOCILIZUMAB. [Concomitant]
     Active Substance: TOCILIZUMAB
     Dosage: UNK
     Dates: start: 20200620
  3. PLASMA [Concomitant]
     Active Substance: HUMAN PLASMA
  4. ETOMIDATE. [Concomitant]
     Active Substance: ETOMIDATE
  5. PHENYLEPHRINE [Concomitant]
     Active Substance: PHENYLEPHRINE HYDROCHLORIDE
  6. ACETAMINOPHEN. [Concomitant]
     Active Substance: ACETAMINOPHEN
  7. REMDESIVIR. [Suspect]
     Active Substance: REMDESIVIR
     Indication: COVID-19
     Dosage: 200 MG, QD
     Route: 042
     Dates: start: 20200620, end: 20200620
  8. CLINIMIX E [Concomitant]
     Active Substance: ALANINE\AMINO ACIDS\ARGININE\CALCIUM CHLORIDE\DEXTROSE\GLYCINE\HISTIDINE\ISOLEUCINE\LEUCINE\LYSINE\MAGNESIUM CHLORIDE\METHIONINE\PHENYLALANINE\POTASSIUM PHOSPHATE, DIBASIC\PROLINE\PROLINE, DL-\SERINE\SODIUM ACETATE\SODIUM CHLORIDE\THREONINE\TRYPTOPHAN\TYROSINE\VALINE
  9. NOREPINEPHRINE. [Concomitant]
     Active Substance: NOREPINEPHRINE
  10. PROPOFOL. [Concomitant]
     Active Substance: PROPOFOL
  11. CHOLECALCIFEROL [Concomitant]
     Active Substance: CHOLECALCIFEROL
  12. HEPARIN [Concomitant]
     Active Substance: HEPARIN SODIUM
  13. CEFTRIAXONE. [Concomitant]
     Active Substance: CEFTRIAXONE
  14. EPINEPHRINE. [Concomitant]
     Active Substance: EPINEPHRINE
  15. ROCURONIUM [Concomitant]
     Active Substance: ROCURONIUM BROMIDE
  16. IVERMECTIN. [Concomitant]
     Active Substance: IVERMECTIN
     Dosage: UNK
     Dates: start: 20200614
  17. CALCIUM GLUCONATE. [Concomitant]
     Active Substance: CALCIUM GLUCONATE
  18. ASCORBIC [Concomitant]
  19. KAYEXALATE [Concomitant]
     Active Substance: SODIUM POLYSTYRENE SULFONATE
  20. REMDESIVIR. [Suspect]
     Active Substance: REMDESIVIR
     Dosage: 100 MG, QD
     Route: 042
     Dates: start: 20200621, end: 20200624
  21. ALBUTEROL HFA [Concomitant]
     Active Substance: ALBUTEROL SULFATE
  22. CHLORHEXIDINE [Concomitant]
     Active Substance: CHLORHEXIDINE
  23. SOLU?MEDROL [Concomitant]
     Active Substance: METHYLPREDNISOLONE SODIUM SUCCINATE
  24. PETROLATUM/MINERAL OIL [Concomitant]
  25. ENOXAPARIN [Concomitant]
     Active Substance: ENOXAPARIN
  26. FAMOTIDINE. [Concomitant]
     Active Substance: FAMOTIDINE
  27. ONDANSETRON [Concomitant]
     Active Substance: ONDANSETRON
  28. SODIUM BICARBONATE. [Concomitant]
     Active Substance: SODIUM BICARBONATE
  29. VASOPRESSIN. [Concomitant]
     Active Substance: VASOPRESSIN
  30. METOPROLOL. [Concomitant]
     Active Substance: METOPROLOL
  31. ZINC SULFATE. [Concomitant]
     Active Substance: ZINC SULFATE

REACTIONS (11)
  - Acute kidney injury [Fatal]
  - Pulseless electrical activity [Fatal]
  - Hypotension [Fatal]
  - Liver disorder [Fatal]
  - Cardiac arrest [Fatal]
  - Respiratory disorder [Fatal]
  - Electrocardiogram QRS complex prolonged [Fatal]
  - Hepatic enzyme increased [Fatal]
  - Bradycardia [Fatal]
  - Heart rate decreased [Fatal]
  - Renal tubular necrosis [Unknown]

NARRATIVE: CASE EVENT DATE: 20200628
